FAERS Safety Report 18943517 (Version 1)
Quarter: 2021Q1

REPORT INFORMATION
  Report Type: Spontaneous
  Country: US (occurrence: US)
  Receive Date: 20210224
  Receipt Date: 20210224
  Transmission Date: 20210420
  Serious: Yes (Disabling, Other)
  Sender: FDA-Public Use
  Company Number: None

PATIENT
  Age: 58 Year
  Sex: Female
  Weight: 58.97 kg

DRUGS (2)
  1. LAMOTRIGINE. [Suspect]
     Active Substance: LAMOTRIGINE
     Indication: PARTIAL SEIZURES
     Dosage: MOUTH: 100MG MORNING, 150MG BEDTIME
     Route: 048
     Dates: start: 20210213, end: 20210213
  2. ADVIL [Concomitant]
     Active Substance: IBUPROFEN

REACTIONS (5)
  - Muscle twitching [None]
  - Product commingling [None]
  - Drooling [None]
  - Tremor [None]
  - Suspected product tampering [None]

NARRATIVE: CASE EVENT DATE: 20210213
